FAERS Safety Report 4298961-7 (Version None)
Quarter: 2004Q1

REPORT INFORMATION
  Report Type: 
  Country: None (occurrence: None)
  Receive Date: 20040217
  Receipt Date: 20040203
  Transmission Date: 20041129
  Serious: Yes (Hospitalization)
  Sender: FDA-Public Use
  Company Number: 7396

PATIENT
  Age: 16 Year
  Sex: Female

DRUGS (1)
  1. METHOTREXATE [Suspect]
     Dosage: 7.5 MG WEEKLY

REACTIONS (9)
  - BLOOD PRESSURE DECREASED [None]
  - COAGULOPATHY [None]
  - LOSS OF CONSCIOUSNESS [None]
  - NECROTISING FASCIITIS [None]
  - PHARYNGOLARYNGEAL PAIN [None]
  - PYREXIA [None]
  - RENAL IMPAIRMENT [None]
  - THROMBOCYTOPENIA [None]
  - TOXIC SHOCK SYNDROME STREPTOCOCCAL [None]
